FAERS Safety Report 9507253 (Version 1)
Quarter: 2013Q1

REPORT INFORMATION
  Report Type: Spontaneous
  Country: US (occurrence: None)
  Receive Date: 20130305
  Receipt Date: 20130305
  Transmission Date: 20140127
  Serious: Yes (Hospitalization)
  Sender: FDA-Public Use
  Company Number: 163-21880-12050066

PATIENT
  Age: 68 Year
  Sex: Female

DRUGS (9)
  1. REVLIMID [Suspect]
     Indication: PLASMA CELL MYELOMA
  2. ACYCYLOVIR (ACICLOVIR) (UNKNOWN) [Concomitant]
  3. DEXAMETHASONE (DEXAMETHASONE) (UNKNOWN) [Concomitant]
  4. FENTANYL (FENTANYL) (UNKNOWN) (FENTANYL) [Concomitant]
  5. METHIMAZOLE (THIAMAZOLE) (UNKNOWN) [Concomitant]
  6. TEMAZEPAM (TEMAZEPAM) (UNKNOWN) [Concomitant]
  7. CALCIUM (CALCIUM) (UNKNOWN) [Concomitant]
  8. VITAMIN D3 (COLECALCIFEROL) (UNKNOWN) [Concomitant]
  9. MULTIVITAMINS (MULTIVITAMINS) (UNKNOWN) [Concomitant]

REACTIONS (3)
  - Fluid retention [None]
  - Hyperhidrosis [None]
  - Chills [None]
